FAERS Safety Report 21283303 (Version 1)
Quarter: 2022Q3

REPORT INFORMATION
  Report Type: Other
  Country: SE (occurrence: SE)
  Receive Date: 20220901
  Receipt Date: 20220901
  Transmission Date: 20221027
  Serious: Yes (Life-Threatening)
  Sender: FDA-Public Use
  Company Number: None

PATIENT
  Age: 76 Year
  Sex: Female
  Weight: 74 kg

DRUGS (3)
  1. FETROJA [Suspect]
     Active Substance: CEFIDEROCOL SULFATE TOSYLATE
     Indication: Pneumonia
     Dosage: 1500 MG, EVERY 1 DAY
     Route: 042
     Dates: start: 20220811, end: 20220817
  2. CIPROFLOXACIN FRESENIUS KABI [CIPROFLOXACIN HYDROGEN SULFATE] [Concomitant]
     Indication: Product used for unknown indication
     Dosage: 2MG/ML 400 MG X 2
     Route: 042
     Dates: start: 20220728, end: 20220817
  3. MEROPENEM STADA [Concomitant]
     Indication: Product used for unknown indication
     Dosage: 1 G, 1GX3
     Route: 042
     Dates: start: 20220728, end: 20220817

REACTIONS (1)
  - Stevens-Johnson syndrome [Not Recovered/Not Resolved]

NARRATIVE: CASE EVENT DATE: 20220815
